FAERS Safety Report 4352420-1 (Version None)
Quarter: 2004Q2

REPORT INFORMATION
  Report Type: 
  Country: None (occurrence: None)
  Receive Date: 20040428
  Receipt Date: 20040416
  Transmission Date: 20050107
  Serious: Yes (Other)
  Sender: FDA-Public Use
  Company Number: 2004026305

PATIENT
  Sex: Female

DRUGS (6)
  1. NEURONTIN [Suspect]
     Indication: MULTIPLE SCLEROSIS
     Dosage: 1600 (TID), UNKNOWN
     Route: 065
  2. NEURONTIN [Suspect]
     Indication: PAIN
     Dosage: 1600 (TID), UNKNOWN
     Route: 065
  3. MORPHINE SULFATE [Concomitant]
  4. ANALESICS (ANALGESICS) [Concomitant]
  5. ANXIOLYTICS (ANXIOLYTICS) [Concomitant]
  6. ANTIDEPRESSANTS (ANTIDEPRESSANTS) [Concomitant]

REACTIONS (1)
  - DRUG DEPENDENCE [None]
